FAERS Safety Report 16132381 (Version 1)
Quarter: 2019Q1

REPORT INFORMATION
  Report Type: Spontaneous
  Country: US (occurrence: US)
  Receive Date: 20190329
  Receipt Date: 20190329
  Transmission Date: 20190418
  Serious: No
  Sender: FDA-Public Use
  Company Number: US-B.I. PHARMACEUTICALS,INC./RIDGEFIELD-2019-BI-013370

PATIENT
  Age: 76 Year
  Sex: Female

DRUGS (1)
  1. SPIRIVA RESPIMAT [Suspect]
     Active Substance: TIOTROPIUM BROMIDE
     Indication: ASTHMA LATE ONSET
     Dosage: 2 PUFFS ONCE DAILY; STRENGTH: 2.5 MCG; FORMULATION: INHALATION SPRAY ACTION TAKEN : DOSE NOT CHANGED
     Route: 055
     Dates: start: 201901

REACTIONS (2)
  - Off label use [Unknown]
  - Synovial rupture [Not Recovered/Not Resolved]

NARRATIVE: CASE EVENT DATE: 20190222
